FAERS Safety Report 24219453 (Version 1)
Quarter: 2024Q3

REPORT INFORMATION
  Report Type: Spontaneous
  Country: US (occurrence: US)
  Receive Date: 20240816
  Receipt Date: 20240816
  Transmission Date: 20241016
  Serious: No
  Sender: Unknown Manufacturer
  Company Number: US-THERATECHNOLOGIES INC.-2024-THE-TES-000297

PATIENT

DRUGS (1)
  1. EGRIFTA SV [Suspect]
     Active Substance: TESAMORELIN ACETATE
     Indication: HIV infection
     Dosage: 1.4 MG, QD
     Route: 058
     Dates: start: 20200521

REACTIONS (3)
  - Intervertebral disc protrusion [Unknown]
  - Product dose omission issue [Unknown]
  - Musculoskeletal discomfort [Unknown]
